FAERS Safety Report 7472849-2 (Version None)
Quarter: 2011Q2

REPORT INFORMATION
  Report Type: 
  Country: None (occurrence: None)
  Receive Date: 20110503
  Receipt Date: 20110421
  Transmission Date: 20111010
  Serious: Yes (Hospitalization, Other)
  Sender: FDA-Public Use
  Company Number: 2011SP011697

PATIENT
  Age: 50 Year
  Sex: Female

DRUGS (9)
  1. PREDNISONE [Concomitant]
  2. CLARITIN [Suspect]
     Indication: MULTIPLE ALLERGIES
     Dosage: 10 MG;PO
     Route: 048
     Dates: start: 20110225, end: 20110309
  3. CLARITIN [Suspect]
     Indication: EYE IRRITATION
     Dosage: 10 MG;PO
     Route: 048
     Dates: start: 20110225, end: 20110309
  4. CLARITIN [Suspect]
     Indication: SNEEZING
     Dosage: 10 MG;PO
     Route: 048
     Dates: start: 20110225, end: 20110309
  5. CLARITIN [Suspect]
     Indication: EYE PRURITUS
     Dosage: 10 MG;PO
     Route: 048
     Dates: start: 20110225, end: 20110309
  6. CLARITIN [Suspect]
     Indication: LACRIMATION INCREASED
     Dosage: 10 MG;PO
     Route: 048
     Dates: start: 20110225, end: 20110309
  7. CLARITIN [Suspect]
     Indication: RHINORRHOEA
     Dosage: 10 MG;PO
     Route: 048
     Dates: start: 20110225, end: 20110309
  8. SINGULAIR [Concomitant]
  9. ASTHMA MEDICATION [Concomitant]

REACTIONS (4)
  - DYSPNOEA [None]
  - URTICARIA [None]
  - OVERDOSE [None]
  - BURNING SENSATION [None]
